FAERS Safety Report 22889899 (Version 3)
Quarter: 2024Q1

REPORT INFORMATION
  Report Type: Report from Study
  Country: US (occurrence: US)
  Receive Date: 20230831
  Receipt Date: 20240313
  Transmission Date: 20240410
  Serious: Yes (Congenital Anomaly, Other)
  Sender: FDA-Public Use
  Company Number: US-TEVA-2023-US-2923371

PATIENT
  Sex: Female

DRUGS (3)
  1. NAPROXEN [Suspect]
     Active Substance: NAPROXEN
     Indication: Migraine
     Dosage: DOSAGE TEXT: 220 MG, 2 TIMES PER WEEK
     Route: 064
     Dates: start: 202202, end: 20220517
  2. RIZATRIPTAN [Suspect]
     Active Substance: RIZATRIPTAN
     Indication: Migraine
     Dosage: TIME INTERVAL: AS NECESSARY
     Route: 064
     Dates: start: 20220217, end: 20220517
  3. BOTOX [Suspect]
     Active Substance: ONABOTULINUMTOXINA
     Indication: Migraine prophylaxis
     Dosage: DOSAGE TEXT: DOSE: 200 UNITS, FREQUENCY: EVERY 12 WEEKS
     Route: 064
     Dates: start: 20220207, end: 20220517

REACTIONS (5)
  - Haemangioma of skin [Recovering/Resolving]
  - Foetal exposure during pregnancy [Unknown]
  - Tricuspid valve incompetence [Recovering/Resolving]
  - Atrial septal defect [Recovering/Resolving]
  - Congenital coronary artery malformation [Recovering/Resolving]

NARRATIVE: CASE EVENT DATE: 20220422
